FAERS Safety Report 4839427-2 (Version None)
Quarter: 2005Q4

REPORT INFORMATION
  Report Type: 
  Country: None (occurrence: None)
  Receive Date: 20051129
  Receipt Date: 20040428
  Transmission Date: 20060501
  Serious: No
  Sender: FDA-Public Use
  Company Number: 2004-01729

PATIENT
  Age: 49 Year
  Sex: Female
  Weight: 63.7 kg

DRUGS (3)
  1. BUPROPION HCL [Suspect]
     Indication: DEPRESSION
     Dosage: 150MG TWICE PER DAY
     Route: 048
     Dates: start: 20040420, end: 20040421
  2. DOXYCYCLINE [Concomitant]
     Dosage: 100MG PER DAY
     Route: 048
     Dates: start: 20040420, end: 20040430
  3. BACLOFEN [Concomitant]
     Indication: DRUG USE FOR UNKNOWN INDICATION
     Dosage: 20MG AT NIGHT
     Route: 048
     Dates: start: 20030723

REACTIONS (3)
  - CRYING [None]
  - DRUG INEFFECTIVE [None]
  - PANIC ATTACK [None]
